FAERS Safety Report 16921709 (Version 1)
Quarter: 2019Q4

REPORT INFORMATION
  Report Type: Report from Study
  Country: AR (occurrence: AR)
  Receive Date: 20191015
  Receipt Date: 20191015
  Transmission Date: 20200122
  Serious: Yes (Other)
  Sender: FDA-Public Use
  Company Number: PHHO2017AR000723

PATIENT
  Age: 70 Year
  Sex: Female
  Weight: 76 kg

DRUGS (6)
  1. FURSEMIDE [Concomitant]
     Active Substance: FUROSEMIDE
     Indication: CARDIAC FAILURE
     Dosage: 40 MG, QID
     Route: 065
     Dates: start: 201604
  2. NO TREATMENT RECEIVED [Suspect]
     Active Substance: UNSPECIFIED INGREDIENT
     Indication: PRODUCT USED FOR UNKNOWN INDICATION
     Dosage: NO TREATMENT
     Route: 065
  3. FURSEMIDE [Concomitant]
     Active Substance: FUROSEMIDE
     Indication: HYPERTENSION
  4. ENALAPRIL [Concomitant]
     Active Substance: ENALAPRIL
     Indication: HYPERTENSION
     Dosage: 2.5 UNK, UNK
     Route: 065
     Dates: start: 200004, end: 20161130
  5. VALSARTAN / DIOVAN / VAL489 / CGP 48933 [Suspect]
     Active Substance: VALSARTAN
     Indication: PRODUCT USED FOR UNKNOWN INDICATION
     Dosage: 80 MG, BID
     Route: 048
     Dates: start: 20161201, end: 20161203
  6. DABIGATRAN [Concomitant]
     Active Substance: DABIGATRAN
     Indication: ATRIAL FIBRILLATION
     Dosage: 150 MG, BID
     Route: 065
     Dates: start: 201601

REACTIONS (1)
  - Angioedema [Recovered/Resolved]

NARRATIVE: CASE EVENT DATE: 20161203
